FAERS Safety Report 17157870 (Version 1)
Quarter: 2019Q4

REPORT INFORMATION
  Report Type: Spontaneous
  Country: US (occurrence: US)
  Receive Date: 20191213
  Receipt Date: 20191213
  Transmission Date: 20200122
  Serious: Yes (Other)
  Sender: FDA-Public Use
  Company Number: None

PATIENT
  Age: 46 Year
  Sex: Female
  Weight: 110.25 kg

DRUGS (1)
  1. ALPRAZOLAM TABLETS USP C-IV 0.5 MG [Suspect]
     Active Substance: ALPRAZOLAM
     Indication: ANXIETY
     Dosage: ?          QUANTITY:3 TABLET(S);?
     Route: 048

REACTIONS (4)
  - Product quality issue [None]
  - Recalled product [None]
  - Anxiety [None]
  - Recalled product administered [None]

NARRATIVE: CASE EVENT DATE: 20191029
